FAERS Safety Report 8914066 (Version 1)
Quarter: 2012Q4

REPORT INFORMATION
  Report Type: Spontaneous
  Country: US (occurrence: None)
  Receive Date: 20121115
  Receipt Date: 20121115
  Transmission Date: 20130627
  Serious: Yes (Life-Threatening, Hospitalization)
  Sender: FDA-Public Use
  Company Number: None

PATIENT
  Age: 51 Year
  Sex: Female
  Weight: 76.2 kg

DRUGS (1)
  1. TYSABRI [Suspect]
     Indication: MULTIPLE SCLEROSIS
     Dosage: IV Drip
     Route: 041
     Dates: start: 20121019, end: 20121019

REACTIONS (6)
  - Allergic transfusion reaction [None]
  - Flushing [None]
  - Chills [None]
  - Back pain [None]
  - Abdominal infection [None]
  - Abdominal abscess [None]
